FAERS Safety Report 6977752-X (Version None)
Quarter: 2010Q3

REPORT INFORMATION
  Report Type: 
  Country: None (occurrence: None)
  Receive Date: 20100913
  Receipt Date: 20100903
  Transmission Date: 20110219
  Serious: No
  Sender: FDA-Public Use
  Company Number: US-BIOGENIDEC-2010BI030982

PATIENT
  Sex: Female

DRUGS (2)
  1. TYSABRI [Suspect]
     Indication: MULTIPLE SCLEROSIS
     Route: 042
     Dates: start: 20060921, end: 20100729
  2. LIPITOR [Concomitant]

REACTIONS (6)
  - ABASIA [None]
  - COORDINATION ABNORMAL [None]
  - DEPRESSED MOOD [None]
  - DYSGRAPHIA [None]
  - HYPERHIDROSIS [None]
  - MUSCULAR WEAKNESS [None]
